FAERS Safety Report 4984274-4 (Version None)
Quarter: 2006Q2

REPORT INFORMATION
  Report Type: 
  Country: None (occurrence: None)
  Receive Date: 20060420
  Receipt Date: 20060407
  Transmission Date: 20061013
  Serious: Yes (Death)
  Sender: FDA-Public Use
  Company Number: 13875

PATIENT
  Age: 68 Year
  Sex: Male

DRUGS (14)
  1. PAMIDRONATE DISODIUM [Suspect]
  2. QUININE [Suspect]
     Indication: MUSCLE SPASMS
     Dosage: 200 MG DAILY PO
     Route: 048
  3. INDORAMIN [Suspect]
     Dosage: 20 MG DAILY PO
     Route: 048
  4. PANTOPRAZOLE [Suspect]
     Dosage: 20 MG DAILY PO
     Route: 048
  5. THALIDOMIDE [Suspect]
     Indication: MULTIPLE MYELOMA
     Dosage: 100 MG DAILY PO
     Route: 048
  6. ZOMETA [Suspect]
     Indication: MULTIPLE MYELOMA
     Dosage: 4 MG OTH IV
     Route: 042
  7. ATORVASTATIN [Concomitant]
  8. SENNA [Concomitant]
  9. NYSTATIN [Concomitant]
  10. GABAPENTIN [Concomitant]
  11. DOCUSATE [Concomitant]
  12. ZOPICLONE [Concomitant]
  13. OXYCONTIN [Concomitant]
  14. DIAZEPAM [Concomitant]

REACTIONS (5)
  - AGITATION [None]
  - BLOOD POTASSIUM DECREASED [None]
  - BLOOD SODIUM DECREASED [None]
  - DRUG INTERACTION [None]
  - RENAL FAILURE ACUTE [None]
